FAERS Safety Report 7689764-1 (Version None)
Quarter: 2011Q3

REPORT INFORMATION
  Report Type: 
  Country: None (occurrence: None)
  Receive Date: 20110817
  Receipt Date: 20110808
  Transmission Date: 20111222
  Serious: Yes (Hospitalization, Other)
  Sender: FDA-Public Use
  Company Number: US-US-EMD SERONO, INC.-7076419

PATIENT
  Sex: Female
  Weight: 39 kg

DRUGS (2)
  1. REBIF [Suspect]
     Indication: MULTIPLE SCLEROSIS
     Dates: start: 20071024
  2. NITROGLYCERIN [Concomitant]
     Indication: ILIAC ARTERY OCCLUSION

REACTIONS (7)
  - OEDEMA PERIPHERAL [None]
  - HOMICIDAL IDEATION [None]
  - INJECTION SITE NODULE [None]
  - PALPITATIONS [None]
  - PELVIC FRACTURE [None]
  - FALL [None]
  - INJECTION SITE DISCOLOURATION [None]
